FAERS Safety Report 19937556 (Version 3)
Quarter: 2021Q4

REPORT INFORMATION
  Report Type: Spontaneous
  Country: JP (occurrence: JP)
  Receive Date: 20211011
  Receipt Date: 20211109
  Transmission Date: 20220303
  Serious: Yes (Other)
  Sender: FDA-Public Use
  Company Number: JP-BRISTOL-MYERS SQUIBB COMPANY-BMS-2021-103347

PATIENT
  Age: 80 Year
  Sex: Female
  Weight: 26.5 kg

DRUGS (17)
  1. ELIQUIS [Suspect]
     Active Substance: APIXABAN
     Indication: Cerebrovascular accident prophylaxis
     Dosage: 5 MILLIGRAM, BID
     Route: 048
     Dates: start: 20150810, end: 20151017
  2. ELIQUIS [Suspect]
     Active Substance: APIXABAN
     Dosage: 2.5 MILLIGRAM, BID
     Route: 048
     Dates: start: 20151021, end: 20160125
  3. ELIQUIS [Suspect]
     Active Substance: APIXABAN
     Dosage: 2.5 MILLIGRAM, BID
     Route: 048
     Dates: start: 20160215, end: 20170714
  4. AZOSEMIDE [Concomitant]
     Active Substance: AZOSEMIDE
     Indication: Cardiac failure
     Dosage: 15 MILLIGRAM, QD
     Route: 048
     Dates: start: 20150810, end: 20151118
  5. AZOSEMIDE [Concomitant]
     Active Substance: AZOSEMIDE
     Dosage: 30 MILLIGRAM, QD
     Route: 048
     Dates: start: 20151119, end: 20170405
  6. AZOSEMIDE [Concomitant]
     Active Substance: AZOSEMIDE
     Dosage: 45 MILLIGRAM, QD
     Route: 048
     Dates: start: 20170406, end: 20190424
  7. AZOSEMIDE [Concomitant]
     Active Substance: AZOSEMIDE
     Dosage: 60 MILLIGRAM, QD
     Route: 048
     Dates: start: 20190425, end: 20190522
  8. AZOSEMIDE [Concomitant]
     Active Substance: AZOSEMIDE
     Dosage: 30 MILLIGRAM, QD
     Route: 048
     Dates: start: 20190523, end: 20190724
  9. AZOSEMIDE [Concomitant]
     Active Substance: AZOSEMIDE
     Dosage: 45 MILLIGRAM, QD
     Route: 048
     Dates: start: 20190725, end: 20190918
  10. AZOSEMIDE [Concomitant]
     Active Substance: AZOSEMIDE
     Dosage: 30 MILLIGRAM, QD
     Route: 048
     Dates: start: 20190919, end: 20200521
  11. AZOSEMIDE [Concomitant]
     Active Substance: AZOSEMIDE
     Dosage: 45 MILLIGRAM, QD
     Route: 048
     Dates: start: 20200522, end: 20200617
  12. AZOSEMIDE [Concomitant]
     Active Substance: AZOSEMIDE
     Dosage: 60 MILLIGRAM, QD
     Route: 048
     Dates: start: 20200618, end: 20211020
  13. AZOSEMIDE [Concomitant]
     Active Substance: AZOSEMIDE
     Dosage: 45 MILLIGRAM, QD
     Route: 048
     Dates: start: 20211021
  14. SPIRONOLACTONE [Concomitant]
     Active Substance: SPIRONOLACTONE
     Indication: Cardiac failure
     Dosage: 50 MILLIGRAM, QD
     Route: 065
     Dates: start: 20170209
  15. EDOXABAN TOSYLATE [Concomitant]
     Active Substance: EDOXABAN TOSYLATE
     Indication: Atrial fibrillation
     Dosage: 30 MILLIGRAM, QD
     Route: 065
     Dates: start: 20200311, end: 20200527
  16. EDOXABAN TOSYLATE [Concomitant]
     Active Substance: EDOXABAN TOSYLATE
     Dosage: 30 MILLIGRAM, QD
     Route: 065
     Dates: start: 20200805
  17. WARFARIN POTASSIUM [Concomitant]
     Active Substance: WARFARIN POTASSIUM
     Indication: Atrial fibrillation
     Dosage: 1.25 MILLIGRAM, QD
     Route: 065
     Dates: start: 20200513, end: 20200805

REACTIONS (4)
  - Melaena [Recovered/Resolved]
  - Diverticulum intestinal [Recovered/Resolved]
  - Off label use [Unknown]
  - Prescribed underdose [Unknown]

NARRATIVE: CASE EVENT DATE: 20151017
